FAERS Safety Report 26070079 (Version 1)
Quarter: 2025Q4

REPORT INFORMATION
  Report Type: Spontaneous
  Country: US (occurrence: None)
  Receive Date: 20251119
  Receipt Date: 20251119
  Transmission Date: 20260118
  Serious: Yes (Hospitalization)
  Sender: FDA-CTU
  Company Number: None

PATIENT
  Age: 34 Year
  Sex: Female

DRUGS (3)
  1. TAVNEOS [Suspect]
     Active Substance: AVACOPAN
     Route: 048
     Dates: start: 20250912
  2. RITUXAN [Suspect]
     Active Substance: RITUXIMAB
     Dates: start: 20250912
  3. PAXLOVID [Suspect]
     Active Substance: NIRMATRELVIR\RITONAVIR

REACTIONS (5)
  - Pyrexia [None]
  - Dyspnoea [None]
  - Troponin increased [None]
  - SARS-CoV-2 test positive [None]
  - Infusion related reaction [None]

NARRATIVE: CASE EVENT DATE: 20251119
